FAERS Safety Report 7802702-3 (Version None)
Quarter: 2011Q4

REPORT INFORMATION
  Report Type: 
  Country: None (occurrence: None)
  Receive Date: 20111007
  Receipt Date: 20111006
  Transmission Date: 20120403
  Serious: Yes (Death)
  Sender: FDA-Public Use
  Company Number: PHHY2010NL76811

PATIENT
  Sex: Male

DRUGS (3)
  1. ZOLADEX [Concomitant]
     Route: 058
  2. TAXOTERE [Concomitant]
     Route: 042
  3. ZOMETA [Suspect]
     Indication: METASTASES TO BONE
     Dosage: 4 MG/5 ML 1X PER 4 WEEKS
     Dates: start: 20091119, end: 20101025

REACTIONS (2)
  - NEOPLASM PROGRESSION [None]
  - NEOPLASM MALIGNANT [None]
